FAERS Safety Report 4953811-8 (Version None)
Quarter: 2006Q1

REPORT INFORMATION
  Report Type: 
  Country: None (occurrence: None)
  Receive Date: 20060321
  Receipt Date: 20060308
  Transmission Date: 20060701
  Serious: Yes (Hospitalization)
  Sender: FDA-Public Use
  Company Number: 2006PV009863

PATIENT
  Age: 66 Year
  Sex: Male

DRUGS (5)
  1. BYETTA [Suspect]
     Indication: DIABETES MELLITUS NON-INSULIN-DEPENDENT
     Dosage: 10 MCG; BID; SC; SEE IMAGE
     Route: 058
     Dates: start: 20050601, end: 20050701
  2. BYETTA [Suspect]
     Indication: DIABETES MELLITUS NON-INSULIN-DEPENDENT
     Dosage: 10 MCG; BID; SC; SEE IMAGE
     Route: 058
     Dates: start: 20050701, end: 20060306
  3. HUMALOG [Concomitant]
  4. GLUCOPHAGE [Concomitant]
  5. LANTUS [Concomitant]

REACTIONS (8)
  - DECREASED APPETITE [None]
  - DIABETIC FOOT [None]
  - DIARRHOEA [None]
  - DRUG DOSE OMISSION [None]
  - INFECTED SKIN ULCER [None]
  - TOE AMPUTATION [None]
  - VOMITING [None]
  - WEIGHT DECREASED [None]
